FAERS Safety Report 16351166 (Version 4)
Quarter: 2019Q3

REPORT INFORMATION
  Report Type: Spontaneous
  Country: JP (occurrence: JP)
  Receive Date: 20190524
  Receipt Date: 20190705
  Transmission Date: 20191004
  Serious: Yes (Hospitalization, Other)
  Sender: FDA-Public Use
  Company Number: JP-AMGEN-JPNSP2019080723

PATIENT
  Age: 27 Year
  Sex: Male

DRUGS (3)
  1. PRALIA [Suspect]
     Active Substance: DENOSUMAB
     Indication: CUTANEOUS CALCIFICATION
     Dosage: 60 MILLIGRAM, Q6MO
     Route: 065
  2. ALENDRONATE SODIUM HYDRATE [Suspect]
     Active Substance: ALENDRONATE SODIUM
     Indication: CUTANEOUS CALCIFICATION
     Dosage: 35 MILLIGRAM, Q2WK
     Route: 065
  3. PREDNISOLONE. [Concomitant]
     Active Substance: PREDNISOLONE
     Indication: DERMATOMYOSITIS
     Dosage: UNK
     Route: 065

REACTIONS (5)
  - Fall [Recovered/Resolved]
  - Pain in extremity [Recovered/Resolved]
  - Low turnover osteopathy [Recovered/Resolved]
  - Atypical femur fracture [Recovered/Resolved]
  - Off label use [Unknown]

NARRATIVE: CASE EVENT DATE: 20170123
